FAERS Safety Report 17433619 (Version 1)
Quarter: 2020Q1

REPORT INFORMATION
  Report Type: Spontaneous
  Country: US (occurrence: US)
  Receive Date: 20200219
  Receipt Date: 20200219
  Transmission Date: 20200409
  Serious: Yes (Other)
  Sender: FDA-Public Use
  Company Number: US-ROCHE-2550400

PATIENT
  Sex: Male
  Weight: 97.61 kg

DRUGS (4)
  1. FOSINOPRIL [Concomitant]
     Active Substance: FOSINOPRIL
     Route: 065
  2. INSULIN LISPRO [Concomitant]
     Active Substance: INSULIN LISPRO
     Dosage: 10 UNITS
     Route: 065
  3. VALIUM [Suspect]
     Active Substance: DIAZEPAM
     Indication: ANXIETY
     Dosage: AS NEEDED
     Route: 048
  4. INSULIN GLARGINE [Concomitant]
     Active Substance: INSULIN GLARGINE
     Dosage: 35 UNITS
     Route: 065

REACTIONS (6)
  - Oesophageal haemorrhage [Recovered/Resolved]
  - Oesophageal perforation [Recovered/Resolved]
  - Somnolence [Recovered/Resolved]
  - Diabetic gastroparesis [Not Recovered/Not Resolved]
  - Arthritis [Not Recovered/Not Resolved]
  - Psoriasis [Not Recovered/Not Resolved]
